FAERS Safety Report 23471078 (Version 1)
Quarter: 2024Q1

REPORT INFORMATION
  Report Type: Spontaneous
  Country: CA (occurrence: CA)
  Receive Date: 20240202
  Receipt Date: 20240202
  Transmission Date: 20240410
  Serious: Yes (Other)
  Sender: FDA-Public Use
  Company Number: CA-PFIZER INC-202400009384

PATIENT
  Age: 53 Year
  Sex: Female

DRUGS (4)
  1. METHOTREXATE SODIUM [Suspect]
     Active Substance: METHOTREXATE SODIUM
     Indication: Rheumatoid arthritis
     Dosage: 15 MG, WEEKLY
     Dates: start: 202111, end: 202303
  2. SULFASALAZINE [Suspect]
     Active Substance: SULFASALAZINE
     Indication: Rheumatoid arthritis
     Dosage: 500 MG, 2X/DAY
     Dates: start: 202111, end: 202303
  3. GABAPENTIN [Concomitant]
     Active Substance: GABAPENTIN
     Indication: Sciatica
  4. SYNTHROID [Concomitant]
     Active Substance: LEVOTHYROXINE SODIUM
     Indication: Hypothyroidism

REACTIONS (2)
  - Vaginal cancer [Unknown]
  - Drug ineffective [Unknown]
